FAERS Safety Report 11872143 (Version 1)
Quarter: 2015Q4

REPORT INFORMATION
  Report Type: Spontaneous
  Country: US (occurrence: US)
  Receive Date: 20151228
  Receipt Date: 20151228
  Transmission Date: 20160305
  Serious: Yes (Death, Hospitalization, Other)
  Sender: FDA-Public Use
  Company Number: US-PFIZER INC-2015464439

PATIENT
  Age: 66 Year
  Sex: Female

DRUGS (1)
  1. DEPO-MEDROL [Suspect]
     Active Substance: METHYLPREDNISOLONE ACETATE
     Indication: CHONDROCALCINOSIS PYROPHOSPHATE
     Dosage: 80 MG, UNK (INTO HER LEFT KNEE)
     Dates: start: 20121218, end: 20121218

REACTIONS (4)
  - Death [Fatal]
  - Cerebrovascular accident [Unknown]
  - Arthritis bacterial [Unknown]
  - Osteomyelitis [Unknown]

NARRATIVE: CASE EVENT DATE: 20121223
